FAERS Safety Report 7372805-9 (Version None)
Quarter: 2011Q1

REPORT INFORMATION
  Report Type: 
  Country: None (occurrence: None)
  Receive Date: 20110324
  Receipt Date: 20110118
  Transmission Date: 20110831
  Serious: No
  Sender: FDA-Public Use
  Company Number: US-BAUSCH-2011BL000301

PATIENT
  Age: 56 Year
  Sex: Male
  Weight: 108 kg

DRUGS (16)
  1. ALEVE [Concomitant]
     Indication: BACK DISORDER
     Route: 048
  2. ZOCOR [Concomitant]
     Indication: BLOOD CHOLESTEROL INCREASED
     Route: 048
  3. BESIVANCE [Suspect]
     Indication: PROPHYLAXIS
     Route: 047
     Dates: start: 20110114, end: 20110114
  4. BESIVANCE [Suspect]
     Indication: OFF LABEL USE
     Route: 047
     Dates: start: 20110114, end: 20110114
  5. SYSTANE [Concomitant]
     Route: 047
  6. ZESTRIL /USA/ [Concomitant]
     Indication: HYPERTENSION
     Route: 048
  7. FISH OIL [Concomitant]
     Indication: PROPHYLAXIS
  8. MOTRIN [Concomitant]
     Indication: BACK DISORDER
  9. ZYMBALTA [Concomitant]
  10. TYLENOL ^JOHNSON + JOHNSON^ [Concomitant]
     Indication: BACK DISORDER
  11. KADIN [Concomitant]
     Indication: BACK DISORDER
     Route: 048
  12. LISINOPRIL [Concomitant]
     Indication: HYPERTENSION
  13. FLEXERIL [Concomitant]
     Indication: BACK DISORDER
     Route: 048
  14. ASPIRIN [Concomitant]
     Indication: PROPHYLAXIS
     Route: 048
  15. LYRICA [Concomitant]
     Indication: BACK DISORDER
     Route: 048
  16. MSIR [Concomitant]
     Indication: BACK DISORDER

REACTIONS (2)
  - ULCERATIVE KERATITIS [None]
  - IRITIS [None]
